FAERS Safety Report 4982083-3 (Version None)
Quarter: 2006Q2

REPORT INFORMATION
  Report Type: 
  Country: None (occurrence: None)
  Receive Date: 20060425
  Receipt Date: 20060414
  Transmission Date: 20061013
  Serious: Yes (Death, Hospitalization)
  Sender: FDA-Public Use
  Company Number: US-MERCK-0604USA02726

PATIENT
  Age: 60 Year
  Sex: Male
  Weight: 159 kg

DRUGS (9)
  1. VIOXX [Suspect]
     Route: 048
     Dates: start: 19991201, end: 20010301
  2. PREVACID [Concomitant]
     Route: 065
  3. PAXIL [Concomitant]
     Route: 065
  4. PROPOXYPHENE HYDROCHLORIDE [Concomitant]
     Route: 065
  5. [THERAPY UNSPECIFIED] [Concomitant]
     Route: 065
  6. ZESTRIL [Concomitant]
     Route: 065
  7. FUROSEMIDE [Concomitant]
     Route: 065
  8. DARVOCET [Concomitant]
     Route: 065
  9. HYDROCODONE HYDROCHLORIDE [Concomitant]
     Route: 065

REACTIONS (2)
  - ACUTE MYOCARDIAL INFARCTION [None]
  - CARDIO-RESPIRATORY ARREST [None]
